FAERS Safety Report 8319649-9 (Version None)
Quarter: 2012Q2

REPORT INFORMATION
  Report Type: 
  Country: None (occurrence: None)
  Receive Date: 20120427
  Receipt Date: 20120419
  Transmission Date: 20120825
  Serious: Yes (Other)
  Sender: FDA-Public Use
  Company Number: PT-ABBOTT-12P-130-0920106-00

PATIENT
  Sex: Female

DRUGS (1)
  1. HUMIRA [Suspect]
     Indication: ANKYLOSING SPONDYLITIS
     Route: 058
     Dates: start: 20111109

REACTIONS (5)
  - MONARTHRITIS [None]
  - CONDITION AGGRAVATED [None]
  - SYNOVITIS [None]
  - OEDEMA PERIPHERAL [None]
  - DRUG EFFECT DECREASED [None]
